FAERS Safety Report 7820633 (Version 5)
Quarter: 2013Q3

REPORT INFORMATION
  Report Type: Report from Study
  Country: ZA (occurrence: ZA)
  Receive Date: 20110222
  Receipt Date: 20130910
  Transmission Date: 20140515
  Serious: Yes (Hospitalization, Other)
  Sender: FDA-Public Use
  Company Number: PHHY2010ZA90440

PATIENT
  Age: 18 Year
  Sex: Female
  Weight: 50 kg

DRUGS (3)
  1. GLEEVEC [Suspect]
     Indication: CHRONIC MYELOID LEUKAEMIA
     Dosage: 200 MG, UNK
     Dates: start: 200712
  2. GLEEVEC [Suspect]
     Dosage: 300 MG, UNK
     Dates: start: 20100824
  3. GLEEVEC [Suspect]
     Dosage: 400 MG, UNK
     Dates: end: 20130110

REACTIONS (9)
  - Pneumonia [Unknown]
  - Obstructed labour [Unknown]
  - Axillary pain [Recovered/Resolved]
  - Thrombophlebitis [Recovered/Resolved]
  - Pulmonary tuberculosis [Unknown]
  - Local swelling [Unknown]
  - Folliculitis [Unknown]
  - Rash [Unknown]
  - Maternal exposure during pregnancy [Unknown]
